FAERS Safety Report 4731375-1 (Version None)
Quarter: 2005Q3

REPORT INFORMATION
  Report Type: 
  Country: None (occurrence: None)
  Receive Date: 20050802
  Receipt Date: 20050718
  Transmission Date: 20060218
  Serious: Yes (Hospitalization)
  Sender: FDA-Public Use
  Company Number: 200512594FR

PATIENT
  Age: 59 Year
  Sex: Male

DRUGS (7)
  1. CLAFORAN [Suspect]
     Route: 042
     Dates: start: 20050521, end: 20050522
  2. FOSFOCINE [Suspect]
     Route: 042
     Dates: start: 20050521, end: 20050522
  3. PREVISCAN [Concomitant]
     Route: 048
     Dates: start: 19980101, end: 20050522
  4. LIPANTHYL [Concomitant]
     Route: 048
  5. DIGOXIN [Concomitant]
  6. KENZEN [Concomitant]
  7. ZONDAR [Concomitant]

REACTIONS (6)
  - CARDIAC TAMPONADE [None]
  - DRUG INTERACTION [None]
  - INTERNATIONAL NORMALISED RATIO INCREASED [None]
  - PERICARDIAL HAEMORRHAGE [None]
  - PROTHROMBIN TIME RATIO DECREASED [None]
  - SEPTIC SHOCK [None]
